FAERS Safety Report 9586670 (Version 2)
Quarter: 2013Q4

REPORT INFORMATION
  Report Type: Spontaneous
  Country: US (occurrence: US)
  Receive Date: 20131003
  Receipt Date: 20131003
  Transmission Date: 20140711
  Serious: No
  Sender: FDA-Public Use
  Company Number: US-BAXTER-2013BAX003878

PATIENT
  Sex: Female

DRUGS (2)
  1. DIANEAL LOW CALCIUM [Suspect]
     Indication: PERITONEAL DIALYSIS
     Route: 033
  2. GENTAMYCIN [Suspect]
     Indication: CATHETER SITE INFECTION

REACTIONS (3)
  - Staphylococcal infection [Recovered/Resolved]
  - Bacterial infection [Recovered/Resolved]
  - Catheter site infection [Recovered/Resolved]
